FAERS Safety Report 10682300 (Version 2)
Quarter: 2015Q1

REPORT INFORMATION
  Report Type: Report from Study
  Country: CA (occurrence: CA)
  Receive Date: 20141230
  Receipt Date: 20150226
  Transmission Date: 20150720
  Serious: Yes (Other)
  Sender: FDA-Public Use
  Company Number: CA-ABBVIE-14K-028-1325851-00

PATIENT
  Age: 41 Year
  Sex: Female
  Weight: 95.34 kg

DRUGS (14)
  1. L-ARGININE [Concomitant]
     Active Substance: ARGININE
     Indication: PRODUCT USED FOR UNKNOWN INDICATION
     Dates: start: 201403
  2. ALEVE [Concomitant]
     Active Substance: NAPROXEN SODIUM
     Indication: PRODUCT USED FOR UNKNOWN INDICATION
     Dosage: 1-2 TABLETS PRN
     Dates: start: 201406
  3. CORE GREENS [Concomitant]
     Indication: SUPPLEMENTATION THERAPY
     Dosage: 1 TABLESPOON TWICE AS DAY
     Route: 048
     Dates: start: 200901
  4. HUMIRA [Suspect]
     Active Substance: ADALIMUMAB
     Indication: CROHN^S DISEASE
     Route: 058
     Dates: end: 20111207
  5. TYLENOL [Concomitant]
     Active Substance: ACETAMINOPHEN
     Indication: PRODUCT USED FOR UNKNOWN INDICATION
     Route: 048
     Dates: start: 1998
  6. INFLIXIMAB [Suspect]
     Active Substance: INFLIXIMAB
     Indication: PRODUCT USED FOR UNKNOWN INDICATION
     Dosage: 5MG PER KG FOR EACH INFUSION. RECEIVED 6 DOSES TOTAL.
     Route: 042
     Dates: start: 20000620, end: 20011002
  7. MAXALT [Concomitant]
     Active Substance: RIZATRIPTAN BENZOATE
     Indication: PRODUCT USED FOR UNKNOWN INDICATION
     Route: 048
     Dates: start: 200706
  8. MISTICA [Concomitant]
     Indication: SUPPLEMENTATION THERAPY
     Dates: start: 200901
  9. AZATHIOPRINE. [Suspect]
     Active Substance: AZATHIOPRINE
     Indication: PRODUCT USED FOR UNKNOWN INDICATION
     Dosage: 1.5MG PER KG ONCE A DAY
     Route: 048
     Dates: start: 200008, end: 200008
  10. 6-MERCAPTOPURINE MONOHYDRATE [Suspect]
     Active Substance: MERCAPTOPURINE
     Indication: PRODUCT USED FOR UNKNOWN INDICATION
     Route: 048
     Dates: start: 200010, end: 200010
  11. LOMOTIL [Concomitant]
     Active Substance: ATROPINE SULFATE\DIPHENOXYLATE HYDROCHLORIDE
     Indication: PRODUCT USED FOR UNKNOWN INDICATION
     Dosage: 0.025MG/2.5MG
     Route: 048
     Dates: start: 200510
  12. AMITRIPTYLINE [Concomitant]
     Active Substance: AMITRIPTYLINE
     Indication: PRODUCT USED FOR UNKNOWN INDICATION
     Route: 048
     Dates: start: 200603
  13. ZOVIRAX [Concomitant]
     Active Substance: ACYCLOVIR
     Indication: PRODUCT USED FOR UNKNOWN INDICATION
     Dosage: 1 APPLICATION 3-4 TIMES A DAY
     Dates: start: 200902
  14. BACTROBAN [Concomitant]
     Active Substance: MUPIROCIN\MUPIROCIN CALCIUM
     Indication: PRODUCT USED FOR UNKNOWN INDICATION
     Dosage: 1 APPLICATION 3-4 TIMES DAILY
     Dates: start: 200902

REACTIONS (7)
  - Infertility female [Unknown]
  - Uterine atrophy [Unknown]
  - Uterine polyp [Unknown]
  - Endometrial hyperplasia [Unknown]
  - Endometrial adenocarcinoma [Recovering/Resolving]
  - Cervical cyst [Unknown]
  - Uterine leiomyoma [Unknown]

NARRATIVE: CASE EVENT DATE: 2014
